FAERS Safety Report 5584589-5 (Version None)
Quarter: 2008Q1

REPORT INFORMATION
  Report Type: 
  Country: None (occurrence: None)
  Receive Date: 20080108
  Receipt Date: 20071119
  Transmission Date: 20080703
  Serious: Yes (Disabling)
  Sender: FDA-Public Use
  Company Number: CH-RANBAXY-2007US-11588

PATIENT

DRUGS (5)
  1. ISOPTIN SR [Suspect]
     Indication: HYPERTENSION
     Dosage: UNK MG, UNK
     Dates: start: 20020101
  2. SIMVASTATIN [Interacting]
     Indication: DYSLIPIDAEMIA
     Dosage: UNK
     Route: 048
     Dates: start: 20040901, end: 20061201
  3. ACETYLSALICYLIC ACID SRT [Concomitant]
     Indication: DRUG USE FOR UNKNOWN INDICATION
     Dosage: 100 MG, QD
     Route: 048
  4. GINKGO BILOBA ACETONE EXTRACT [Concomitant]
     Indication: DRUG USE FOR UNKNOWN INDICATION
  5. SERENOA REPENS DRY ETHANOL EXTRACT [Concomitant]
     Indication: DRUG USE FOR UNKNOWN INDICATION

REACTIONS (3)
  - BLOOD CREATINE PHOSPHOKINASE INCREASED [None]
  - DRUG INTERACTION [None]
  - MYOPATHY [None]
